FAERS Safety Report 7379662-5 (Version None)
Quarter: 2011Q1

REPORT INFORMATION
  Report Type: 
  Country: None (occurrence: None)
  Receive Date: 20110329
  Receipt Date: 20110328
  Transmission Date: 20110831
  Serious: No
  Sender: FDA-Public Use
  Company Number: US-PFIZER INC-2011068882

PATIENT
  Sex: Male
  Weight: 113 kg

DRUGS (2)
  1. CHANTIX [Suspect]
     Indication: SMOKING CESSATION THERAPY
     Dosage: 0.5 MG DAILY
     Dates: start: 20110301
  2. CHANTIX [Suspect]
     Dosage: 1 MG, 2X/DAY

REACTIONS (2)
  - INSOMNIA [None]
  - ABNORMAL DREAMS [None]
